FAERS Safety Report 8579612-X (Version None)
Quarter: 2012Q3

REPORT INFORMATION
  Report Type: 
  Country: None (occurrence: None)
  Receive Date: 20120808
  Receipt Date: 20120730
  Transmission Date: 20120928
  Serious: Yes (Hospitalization)
  Sender: FDA-Public Use
  Company Number: US-ASTRAZENECA-2012SE53780

PATIENT
  Age: 66 Year
  Sex: Female
  Weight: 81.6 kg

DRUGS (9)
  1. ALBUTEROL [Concomitant]
  2. SYNTHROID [Concomitant]
  3. OXYGEN [Concomitant]
  4. BENICAR [Concomitant]
  5. PULMICORT [Suspect]
     Indication: CHRONIC OBSTRUCTIVE PULMONARY DISEASE
     Route: 055
  6. CLONIDINE [Concomitant]
  7. FUROSEMIDE [Concomitant]
  8. TYLOX [Concomitant]
  9. DILTIAZEM [Concomitant]

REACTIONS (3)
  - OFF LABEL USE [None]
  - EXPIRED DRUG ADMINISTERED [None]
  - PNEUMONIA [None]
